FAERS Safety Report 7582617-9 (Version None)
Quarter: 2011Q2

REPORT INFORMATION
  Report Type: 
  Country: None (occurrence: None)
  Receive Date: 20110630
  Receipt Date: 20110621
  Transmission Date: 20111010
  Serious: Yes (Other)
  Sender: FDA-Public Use
  Company Number: JP-ELI_LILLY_AND_COMPANY-JP201106006596

PATIENT
  Sex: Female

DRUGS (2)
  1. EVISTA [Suspect]
     Route: 048
  2. CORTRIL [Concomitant]
     Route: 048

REACTIONS (1)
  - SURGERY [None]
